FAERS Safety Report 6091965-3 (Version None)
Quarter: 2009Q1

REPORT INFORMATION
  Report Type: 
  Country: None (occurrence: None)
  Receive Date: 20090225
  Receipt Date: 20081107
  Transmission Date: 20090719
  Serious: No
  Sender: FDA-Public Use
  Company Number: A0755421A

PATIENT
  Sex: Female

DRUGS (2)
  1. VALTREX [Suspect]
     Indication: GENITAL HERPES
     Dosage: 1G UNKNOWN
     Route: 048
     Dates: start: 20081103
  2. ACCUTANE [Concomitant]

REACTIONS (2)
  - ASTHENIA [None]
  - SOMNOLENCE [None]
